FAERS Safety Report 9171686 (Version 1)
Quarter: 2013Q1

REPORT INFORMATION
  Report Type: Spontaneous
  Country: FI (occurrence: FI)
  Receive Date: 20130319
  Receipt Date: 20130319
  Transmission Date: 20140127
  Serious: Yes (Death, Other)
  Sender: FDA-Public Use
  Company Number: FI-ASTRAZENECA-2013SE17167

PATIENT
  Age: 70 Year
  Sex: Female

DRUGS (4)
  1. BRILIQUE [Suspect]
     Dosage: LOADING DOSE 180 MG
     Route: 048
  2. BRILIQUE [Suspect]
     Route: 048
  3. CLOPIDOGREL [Suspect]
     Dosage: LOADING DOSE OF 600 MG
     Route: 048
  4. KLEXANE [Concomitant]

REACTIONS (4)
  - Haemorrhage intracranial [Fatal]
  - Cerebrovascular accident [Unknown]
  - Hemiplegia [Unknown]
  - Drug ineffective [Unknown]
